FAERS Safety Report 5261077-7 (Version None)
Quarter: 2007Q1

REPORT INFORMATION
  Report Type: 
  Country: None (occurrence: None)
  Receive Date: 20070306
  Receipt Date: 20070222
  Transmission Date: 20070707
  Serious: Yes (Hospitalization)
  Sender: FDA-Public Use
  Company Number: 2007SP002820

PATIENT
  Age: 53 Year
  Sex: Male
  Weight: 78 kg

DRUGS (9)
  1. PEG-INTRON [Suspect]
     Indication: HEPATITIS C
     Dosage: 120 MCG; QW;SC
     Route: 058
     Dates: start: 20060708, end: 20070201
  2. REBETOL [Suspect]
     Indication: HEPATITIS C
     Dosage: SEE IMAGE
     Route: 048
     Dates: start: 20060708, end: 20060817
  3. REBETOL [Suspect]
     Indication: HEPATITIS C
     Dosage: SEE IMAGE
     Route: 048
     Dates: start: 20060818, end: 20070126
  4. REBETOL [Suspect]
     Indication: HEPATITIS C
     Dosage: SEE IMAGE
     Route: 048
     Dates: start: 20070127, end: 20070201
  5. MUCOSTA (CON.) [Concomitant]
  6. ALINAMIN-F (CON.) [Concomitant]
  7. MYSLEE (CON.) [Concomitant]
  8. ALLELOCK (CON.) [Concomitant]
  9. ATARAX-P (CON.) [Concomitant]

REACTIONS (9)
  - ANAEMIA [None]
  - ANOREXIA [None]
  - BACTERIAL INFECTION [None]
  - CHILLS [None]
  - CHYLOTHORAX [None]
  - PLEURISY [None]
  - PRODUCTIVE COUGH [None]
  - PYREXIA [None]
  - WHITE BLOOD CELL COUNT INCREASED [None]
